FAERS Safety Report 14195933 (Version 4)
Quarter: 2018Q4

REPORT INFORMATION
  Report Type: Report from Study
  Country: CO (occurrence: CO)
  Receive Date: 20171116
  Receipt Date: 20181113
  Transmission Date: 20190204
  Serious: Yes (Hospitalization, Other)
  Sender: FDA-Public Use
  Company Number: CO-ASTELLAS-2017US046777

PATIENT
  Age: 55 Year
  Sex: Male
  Weight: 64 kg

DRUGS (3)
  1. METOPROLOL. [Concomitant]
     Active Substance: METOPROLOL
     Indication: HYPERTENSION
     Dosage: UNK UNK, UNKNOWN FREQ.
     Route: 048
  2. TACROLIMUS. [Suspect]
     Active Substance: TACROLIMUS
     Indication: RENAL TRANSPLANT
     Route: 048
     Dates: start: 20161204, end: 201809
  3. LOSARTAN. [Concomitant]
     Active Substance: LOSARTAN
     Indication: HYPERTENSION
     Dosage: UNK UNK, UNKNOWN FREQ.
     Route: 048

REACTIONS (9)
  - Renal transplant failure [Unknown]
  - Urinary tract infection [Recovering/Resolving]
  - Complications of transplanted kidney [Unknown]
  - Sinusitis [Recovered/Resolved]
  - Kidney transplant rejection [Recovering/Resolving]
  - Headache [Recovered/Resolved]
  - Blood creatinine increased [Unknown]
  - Dysuria [Recovered/Resolved]
  - Herpes ophthalmic [Recovering/Resolving]

NARRATIVE: CASE EVENT DATE: 20161204
